FAERS Safety Report 5251000-3 (Version None)
Quarter: 2007Q1

REPORT INFORMATION
  Report Type: 
  Country: None (occurrence: None)
  Receive Date: 20070228
  Receipt Date: 20070216
  Transmission Date: 20070707
  Serious: Yes (Other)
  Sender: FDA-Public Use
  Company Number: CA-SANOFI-SYNTHELABO-A01200610168

PATIENT
  Age: 72 Year
  Sex: Male

DRUGS (11)
  1. COUMADIN [Concomitant]
     Indication: DRUG USE FOR UNKNOWN INDICATION
     Route: 048
     Dates: start: 20060815
  2. APO-ATENOLOL [Concomitant]
     Indication: HYPERTENSION
     Route: 048
  3. RIVOTRIL [Concomitant]
     Indication: DRUG USE FOR UNKNOWN INDICATION
     Dosage: UNK
     Route: 065
     Dates: start: 20040901
  4. CRESTOR [Concomitant]
     Indication: DRUG USE FOR UNKNOWN INDICATION
     Dosage: UNK
     Route: 065
     Dates: start: 20040901
  5. TENORMIN [Concomitant]
     Indication: DRUG USE FOR UNKNOWN INDICATION
     Dosage: UNK
     Route: 065
     Dates: start: 20021101
  6. AVAPRO [Suspect]
     Indication: HYPERTENSION
     Dosage: FLUCTUATED DAILY DOSE
     Route: 048
     Dates: start: 19990301
  7. DECADRON [Concomitant]
     Indication: BURSITIS
     Route: 065
     Dates: start: 20060301, end: 20060101
  8. DECADRON [Concomitant]
     Route: 065
     Dates: start: 20060101
  9. PLAVIX [Suspect]
     Indication: ANGIOPLASTY
     Route: 048
     Dates: start: 20020701, end: 20060822
  10. PLAVIX [Suspect]
     Indication: STENT PLACEMENT
     Route: 048
     Dates: start: 20020701, end: 20060822
  11. CORDARONE [Suspect]
     Indication: ARRHYTHMIA
     Route: 048
     Dates: start: 19970101

REACTIONS (2)
  - ATRIAL FIBRILLATION [None]
  - BLOOD PRESSURE DECREASED [None]
